FAERS Safety Report 4989251-5 (Version None)
Quarter: 2006Q1

REPORT INFORMATION
  Report Type: 
  Country: None (occurrence: None)
  Receive Date: 20060309
  Receipt Date: 20050518
  Transmission Date: 20060701
  Serious: Yes (Other)
  Sender: FDA-Public Use
  Company Number: 405205

PATIENT
  Age: 19 Year
  Sex: Female
  Weight: 59.9 kg

DRUGS (1)
  1. ACCUTANE [Suspect]
     Indication: ACNE
     Dosage: ORAL
     Route: 048
     Dates: start: 20050215, end: 20050504

REACTIONS (2)
  - AFFECT LABILITY [None]
  - DEPRESSION [None]
